FAERS Safety Report 6381122-5 (Version None)
Quarter: 2009Q3

REPORT INFORMATION
  Report Type: 
  Country: None (occurrence: None)
  Receive Date: 20090925
  Receipt Date: 20090925
  Transmission Date: 20100115
  Serious: Yes (Life-Threatening, Hospitalization)
  Sender: FDA-Public Use
  Company Number: None

PATIENT
  Age: 64 Year
  Sex: Female

DRUGS (3)
  1. ZYVOX [Suspect]
     Indication: EVIDENCE BASED TREATMENT
     Dates: start: 20090912, end: 20090913
  2. ZYVOX [Suspect]
     Indication: PNEUMONIA
     Dates: start: 20090912, end: 20090913
  3. CEFEPIME [Suspect]
     Dates: start: 20090912, end: 20090913

REACTIONS (3)
  - CLOSTRIDIAL INFECTION [None]
  - STEVENS-JOHNSON SYNDROME [None]
  - UNRESPONSIVE TO STIMULI [None]
